FAERS Safety Report 18877381 (Version 1)
Quarter: 2021Q1

REPORT INFORMATION
  Report Type: Other
  Country: US (occurrence: US)
  Receive Date: 20210211
  Receipt Date: 20210211
  Transmission Date: 20210420
  Serious: Yes (Other)
  Sender: FDA-Public Use
  Company Number: US-ROCHE-2763562

PATIENT

DRUGS (7)
  1. FLUOROURACIL. [Suspect]
     Active Substance: FLUOROURACIL
     Route: 041
  2. TRASTUZUMAB. [Suspect]
     Active Substance: TRASTUZUMAB
     Dosage: FOLLOWED BY 4MG/KG
     Route: 042
  3. FLUOROURACIL. [Suspect]
     Active Substance: FLUOROURACIL
     Indication: GASTROOESOPHAGEAL CANCER
     Dosage: ON DAYS 1 AND 15 OF 28?DAY CYCLES.
     Route: 040
  4. IRINOTECAN [Suspect]
     Active Substance: IRINOTECAN
     Indication: GASTROOESOPHAGEAL CANCER
     Dosage: ON DAYS 1 AND 15 OF 28?DAY CYCLES.
     Route: 042
  5. OXALIPLATIN. [Suspect]
     Active Substance: OXALIPLATIN
     Indication: GASTROOESOPHAGEAL CANCER
     Dosage: ON DAYS 1 AND 15 OF 28?DAY CYCLES.
     Route: 042
  6. LEUCOVORIN. [Suspect]
     Active Substance: LEUCOVORIN
     Indication: GASTROOESOPHAGEAL CANCER
     Dosage: ON DAYS 1 AND 15 OF 28?DAY CYCLES.
     Route: 042
  7. TRASTUZUMAB. [Suspect]
     Active Substance: TRASTUZUMAB
     Indication: GASTROOESOPHAGEAL CANCER
     Dosage: LOADING DOSE OF 6 MG/KG FOR THE FIRST DOSE
     Route: 042

REACTIONS (14)
  - Neutropenia [Unknown]
  - Ejection fraction decreased [Unknown]
  - Upper respiratory tract infection [Unknown]
  - Skin infection [Unknown]
  - Diarrhoea [Unknown]
  - Urinary tract infection [Unknown]
  - Device related infection [Unknown]
  - Neutropenic colitis [Unknown]
  - Embolism [Unknown]
  - Nausea [Unknown]
  - Abdominal pain [Unknown]
  - Sepsis [Unknown]
  - Vomiting [Unknown]
  - Pneumonia [Unknown]
